FAERS Safety Report 6448081-8 (Version None)
Quarter: 2009Q4

REPORT INFORMATION
  Report Type: 
  Country: None (occurrence: None)
  Receive Date: 20091120
  Receipt Date: 20091106
  Transmission Date: 20100525
  Serious: Yes (Life-Threatening, Hospitalization)
  Sender: FDA-Public Use
  Company Number: JP-SANOFI-AVENTIS-2009SA002551

PATIENT
  Age: 70 Year
  Sex: Male

DRUGS (8)
  1. OXALIPLATIN [Suspect]
     Indication: COLON CANCER
     Route: 041
     Dates: start: 20090713, end: 20090713
  2. OXALIPLATIN [Suspect]
     Route: 041
     Dates: start: 20091104, end: 20091104
  3. ISOVORIN [Suspect]
     Indication: COLON CANCER
     Route: 041
     Dates: start: 20090713, end: 20090713
  4. ISOVORIN [Suspect]
     Route: 041
     Dates: start: 20091104, end: 20091104
  5. AVASTIN [Suspect]
     Indication: COLON CANCER
     Route: 041
     Dates: start: 20090713, end: 20090713
  6. AVASTIN [Suspect]
     Route: 041
     Dates: start: 20091104, end: 20091104
  7. FLUOROURACIL [Concomitant]
     Indication: COLON CANCER
     Route: 040
     Dates: start: 20090713
  8. FLUOROURACIL [Concomitant]
     Route: 041
     Dates: start: 20090713

REACTIONS (1)
  - SHOCK [None]
